FAERS Safety Report 8501075-0 (Version None)
Quarter: 2012Q3

REPORT INFORMATION
  Report Type: 
  Country: None (occurrence: None)
  Receive Date: 20120710
  Receipt Date: 20120703
  Transmission Date: 20120928
  Serious: Yes (Other)
  Sender: FDA-Public Use
  Company Number: DE-B.I. PHARMACEUTICALS,INC./RIDGEFIELD-2012-DE-01579DE

PATIENT
  Sex: Male

DRUGS (1)
  1. PRADAXA [Suspect]
     Dosage: 2-3 MAXIMUM (220-330MG)
     Route: 048
     Dates: start: 20120703, end: 20120703

REACTIONS (1)
  - ACCIDENTAL EXPOSURE [None]
